FAERS Safety Report 9225644 (Version 1)
Quarter: 2013Q1

REPORT INFORMATION
  Report Type: Spontaneous
  Country: US (occurrence: None)
  Receive Date: 20120914
  Receipt Date: 20120914
  Transmission Date: 20140127
  Serious: Yes (Other)
  Sender: FDA-Public Use
  Company Number: JPI-P-018036

PATIENT
  Age: 53 Year
  Sex: Female
  Weight: 72.12 kg

DRUGS (8)
  1. XYREM (500 MILLIGRAM/MILLILITERS, SOLUTION) (SODIUM OXYBATE) [Suspect]
     Indication: SLEEP DISORDER
     Dosage: 4.5 GM (2.25 GM,2 IN 1 D)
     Route: 048
     Dates: start: 20090625
  2. XYREM (500 MILLIGRAM/MILLILITERS, SOLUTION) (SODIUM OXYBATE) [Suspect]
     Indication: FIBROMYALGIA
     Dosage: 4.5 GM (2.25 GM,2 IN 1 D)
     Route: 048
     Dates: start: 20090625
  3. METOPROLOL [Concomitant]
  4. MILNACIPRAN HYDROCHLORIDE [Concomitant]
  5. QUETIAPINE FUMARATE [Concomitant]
  6. LAMOTRIGINE [Concomitant]
  7. DULOXETINE HYDROCHLORIDE [Concomitant]
  8. IBANDRONATE [Concomitant]

REACTIONS (5)
  - Hypertension [None]
  - Initial insomnia [None]
  - Pollakiuria [None]
  - Enuresis [None]
  - Feeling abnormal [None]
